FAERS Safety Report 5228470-X (Version None)
Quarter: 2007Q1

REPORT INFORMATION
  Report Type: 
  Country: None (occurrence: None)
  Receive Date: 20070131
  Receipt Date: 20070131
  Transmission Date: 20070707
  Serious: Yes (Life-Threatening)
  Sender: FDA-Public Use
  Company Number: None

PATIENT
  Age: 53 Year
  Sex: Male
  Weight: 70 kg

DRUGS (6)
  1. FLUCONAZOLE [Suspect]
     Indication: COCCIDIOIDOMYCOSIS
     Dosage: 800 MG QDAY IV
     Route: 042
     Dates: start: 20061130, end: 20061201
  2. AMBISOME [Suspect]
     Dosage: 350 MG Q DAY IV
     Route: 042
     Dates: start: 20061028
  3. VANCOMYCIN HYDROCHLORIDE [Concomitant]
  4. DUONEB [Concomitant]
  5. NEURONTIN [Concomitant]
  6. REGLAN [Concomitant]

REACTIONS (2)
  - CARDIAC ARREST [None]
  - VENTRICULAR FIBRILLATION [None]
